FAERS Safety Report 17184596 (Version 1)
Quarter: 2019Q4

REPORT INFORMATION
  Report Type: Spontaneous
  Country: FR (occurrence: FR)
  Receive Date: 20191220
  Receipt Date: 20191220
  Transmission Date: 20200122
  Serious: Yes (Death, Hospitalization, Other)
  Sender: FDA-Public Use
  Company Number: FR-MYLANLABS-2019M1125416

PATIENT
  Age: 52 Year
  Sex: Male
  Weight: 75 kg

DRUGS (1)
  1. AMLODIPINE [Suspect]
     Active Substance: AMLODIPINE BESYLATE
     Indication: PRODUCT USED FOR UNKNOWN INDICATION
     Dosage: 900 MILLIGRAM
     Route: 048
     Dates: start: 20190203, end: 20190203

REACTIONS (5)
  - Cardiogenic shock [Not Recovered/Not Resolved]
  - Overdose [Unknown]
  - Cardiac arrest [Fatal]
  - Poisoning deliberate [Unknown]
  - Shock [Not Recovered/Not Resolved]

NARRATIVE: CASE EVENT DATE: 20190204
